FAERS Safety Report 8993505 (Version 1)
Quarter: 2013Q1

REPORT INFORMATION
  Report Type: Spontaneous
  Country: US (occurrence: US)
  Receive Date: 20130102
  Receipt Date: 20130102
  Transmission Date: 20140127
  Serious: Yes (Other)
  Sender: FDA-Public Use
  Company Number: CHPA2012US025907

PATIENT
  Sex: Female

DRUGS (3)
  1. PREVACID 24HR 15MG [Suspect]
     Indication: DYSPEPSIA
     Dosage: 30 MG, QD
     Route: 048
     Dates: start: 2008
  2. PREVACID 24HR 15MG [Suspect]
     Dosage: 15 UNK, UNK
     Route: 048
     Dates: start: 2008, end: 2008
  3. DRUG THERAPY NOS [Concomitant]
     Indication: OSTEOARTHRITIS

REACTIONS (8)
  - Joint dislocation [Not Recovered/Not Resolved]
  - Upper limb fracture [Not Recovered/Not Resolved]
  - Pain [Recovered/Resolved]
  - Fall [Recovered/Resolved]
  - Drug ineffective for unapproved indication [Unknown]
  - Prescribed overdose [Unknown]
  - Therapeutic response unexpected [Unknown]
  - Incorrect drug administration duration [Unknown]
